FAERS Safety Report 20617679 (Version 1)
Quarter: 2022Q1

REPORT INFORMATION
  Report Type: Spontaneous
  Country: GB (occurrence: GB)
  Receive Date: 20220321
  Receipt Date: 20220321
  Transmission Date: 20220423
  Serious: Yes (Hospitalization)
  Sender: FDA-Public Use
  Company Number: None

PATIENT
  Age: 79 Year
  Sex: Male

DRUGS (21)
  1. CLARITHROMYCIN [Suspect]
     Active Substance: CLARITHROMYCIN
     Route: 065
  2. DIGOXIN [Suspect]
     Active Substance: DIGOXIN
     Indication: Atrial fibrillation
     Dosage: 125 MICROGRAM DAILY; MORNING - HIGH LEVEL AFTER BEING ON CLARITH. REINTODUCED AT LOWER DOSE DUE TO A
  3. APIXABAN [Concomitant]
     Active Substance: APIXABAN
     Indication: Atrial fibrillation
     Dosage: 10 MILLIGRAM DAILY; MORNING + TEA
  4. BALNEUM [Concomitant]
     Dosage: 2 DOSAGE FORMS DAILY; *BALNEUM PLUS CREAM (ALMIRALL LTD)
  5. BISOPROLOL [Concomitant]
     Active Substance: BISOPROLOL
     Indication: Atrial fibrillation
     Dosage: 2.5 MILLIGRAM DAILY; MORNING
  6. BUMETANIDE [Concomitant]
     Active Substance: BUMETANIDE
     Dosage: 10 MILLIGRAM DAILY; 3 TO BE TAKEN IN THE MORNING AND 2 AT NIGHT. CHEMIST STATES 3 IN THE MORNING + 2
  7. CHLORPHENIRAMINE MALEATE [Concomitant]
     Active Substance: CHLORPHENIRAMINE MALEATE
     Dosage: ONE TO BE TAKEN UPTO TDS PRN, UNIT DOSE : 4 MG
  8. DAPAGLIFLOZIN [Concomitant]
     Active Substance: DAPAGLIFLOZIN
     Dosage: 10 MILLIGRAM DAILY; STRENGTH : 10 MG , 28 TABLET ACUTE MEDICATION PRESCRIBED.
  9. CHLOROCRESOL [Concomitant]
     Active Substance: CHLOROCRESOL
     Dosage: *DIPROBASE CREAM (BAYER PLC) TOPICALLY AS REQUIRED
     Route: 061
  10. FERROUS FUMARATE [Concomitant]
     Active Substance: FERROUS FUMARATE
     Indication: Anaemia
     Dosage: 630 MILLIGRAM DAILY; MORNING LUNCH + BED
  11. FOLIC ACID [Concomitant]
     Active Substance: FOLIC ACID
     Dosage: 5 MILLIGRAM DAILY; MORNING
  12. HYDRALAZINE [Concomitant]
     Active Substance: HYDRALAZINE HYDROCHLORIDE
  13. LACTULOSE [Concomitant]
     Active Substance: LACTULOSE
     Indication: Constipation
     Dosage: 30 ML DAILY; LACTULOSE 3.1-3.7G/5ML ORAL SOLUTION
  14. LANSOPRAZOLE [Concomitant]
     Active Substance: LANSOPRAZOLE
     Dosage: 30 MILLIGRAM DAILY; TO BE TAKEN EACH MORNING
  15. POLYETHYLENE GLYCOL 3350\POTASSIUM CHLORIDE\SODIUM BICARBONATE\SODIUM [Concomitant]
     Active Substance: POLYETHYLENE GLYCOL 3350\POTASSIUM CHLORIDE\SODIUM BICARBONATE\SODIUM CHLORIDE
     Dosage: 2 DOSAGE FORMS DAILY; DISSOLVE CONTENTS OF ONE SACHET IN HALF A GLASS (125ML) OF WATER AND TAKE TWIC
  16. LINAGLIPTIN [Concomitant]
     Active Substance: LINAGLIPTIN
     Indication: Type 2 diabetes mellitus
     Dosage: 5 MILLIGRAM DAILY; MORNING
  17. INSULIN ASPART [Concomitant]
     Active Substance: INSULIN ASPART
     Dosage: *NOVOMIX 30 FLEXPEN 100UNITS/ML SUSPENSION FOR INJECTION 3ML PRE-FILLED PENS (NOVO NORDISK LTD)
  18. ACETAMINOPHEN [Concomitant]
     Active Substance: ACETAMINOPHEN
     Dosage: STRENGTH AND UNIT DOSE : 500 MG,  TWO TO BE TAKEN EVERY 4-6 HOURS UP TO FOUR TIMES A DAY
  19. RAMIPRIL [Concomitant]
     Active Substance: RAMIPRIL
     Indication: Left ventricular dysfunction
     Dosage: 1.25 MILLIGRAM DAILY; MORNING
  20. RAMIPRIL [Concomitant]
     Active Substance: RAMIPRIL
     Indication: Hypotension
  21. SENNA [Concomitant]
     Active Substance: SENNA LEAF\SENNOSIDES\SENNOSIDES A AND B
     Dosage: TAKE 1 OR 2 AT NIGHT, UNIT DOSE : 7.5 MG

REACTIONS (1)
  - Cardioactive drug level increased [Recovered/Resolved]
